FAERS Safety Report 15724832 (Version 1)
Quarter: 2018Q4

REPORT INFORMATION
  Report Type: Spontaneous
  Country: US (occurrence: US)
  Receive Date: 20181214
  Receipt Date: 20181214
  Transmission Date: 20190205
  Serious: Yes (Other)
  Sender: FDA-Public Use
  Company Number: US-SHIRE-US201848138

PATIENT
  Sex: Female

DRUGS (1)
  1. GATTEX [Suspect]
     Active Substance: TEDUGLUTIDE\WATER
     Indication: SHORT-BOWEL SYNDROME
     Dosage: 0.15 UNK, 1X/DAY:QD
     Route: 065
     Dates: start: 20140617

REACTIONS (4)
  - Nasopharyngitis [Unknown]
  - Dysuria [Unknown]
  - Stoma site irritation [Unknown]
  - Gastrointestinal inflammation [Unknown]
